FAERS Safety Report 8109482-5 (Version None)
Quarter: 2012Q1

REPORT INFORMATION
  Report Type: 
  Country: None (occurrence: None)
  Receive Date: 20120202
  Receipt Date: 20120125
  Transmission Date: 20120608
  Serious: Yes (Other)
  Sender: FDA-Public Use
  Company Number: US-ABBOTT-12P-163-0898495-00

PATIENT
  Sex: Female
  Weight: 61.29 kg

DRUGS (16)
  1. LASIX [Concomitant]
     Indication: JOINT SWELLING
  2. METHOTREXATE [Concomitant]
     Indication: PSORIASIS
     Dosage: INJECTION
  3. HUMIRA [Suspect]
     Indication: PSORIATIC ARTHROPATHY
     Dates: start: 20120109
  4. LASIX [Concomitant]
     Indication: OEDEMA PERIPHERAL
  5. ZOVIRAX [Concomitant]
     Indication: PRODUCT USED FOR UNKNOWN INDICATION
  6. ZAROXOLYN [Concomitant]
     Indication: FLUID RETENTION
  7. METHOTREXATE [Concomitant]
     Indication: PSORIATIC ARTHROPATHY
  8. PRAVACHOL [Concomitant]
     Indication: BLOOD CHOLESTEROL INCREASED
  9. POTASSIUM [Concomitant]
     Indication: PRODUCT USED FOR UNKNOWN INDICATION
  10. AMARYL [Concomitant]
     Indication: TYPE 2 DIABETES MELLITUS
  11. ARMODAFINIL [Concomitant]
     Indication: FUNGAL INFECTION
  12. ARMODAFINIL [Concomitant]
     Indication: PROPHYLAXIS
  13. MAGNESIUM [Concomitant]
     Indication: PRODUCT USED FOR UNKNOWN INDICATION
  14. METFORMIN HCL [Concomitant]
     Indication: TYPE 2 DIABETES MELLITUS
  15. FOLIC ACID [Concomitant]
     Indication: PRODUCT USED FOR UNKNOWN INDICATION
  16. PERCOCET [Concomitant]
     Indication: ARTHRALGIA

REACTIONS (3)
  - OESOPHAGEAL STENOSIS [None]
  - FOREIGN BODY [None]
  - INJECTION SITE PAIN [None]
